FAERS Safety Report 16532756 (Version 3)
Quarter: 2020Q2

REPORT INFORMATION
  Report Type: Report from Study
  Country: CO (occurrence: CO)
  Receive Date: 20190705
  Receipt Date: 20200626
  Transmission Date: 20200713
  Serious: Yes (Hospitalization)
  Sender: FDA-Public Use
  Company Number: CO-ASTELLAS-2019US027646

PATIENT
  Age: 48 Year
  Sex: Female
  Weight: 59 kg

DRUGS (11)
  1. CARVEDILOL. [Concomitant]
     Active Substance: CARVEDILOL
     Indication: BLOOD PRESSURE MEASUREMENT
     Route: 048
     Dates: start: 201704
  2. PREDNISOLONE. [Concomitant]
     Active Substance: PREDNISOLONE
     Indication: RENAL TRANSPLANT
     Route: 048
     Dates: start: 20171203
  3. TACROLIMUS. [Suspect]
     Active Substance: TACROLIMUS
     Dosage: 1.5 MG (1 CAPSULE OF 1MG AND 1 CAPSULE OF 0.5MG) ONCE DAILY
     Route: 048
  4. PREDNISOLONE. [Concomitant]
     Active Substance: PREDNISOLONE
     Indication: DIALYSIS
     Route: 048
     Dates: start: 2013, end: 20171202
  5. ATROPINE. [Concomitant]
     Active Substance: ATROPINE
     Indication: RENAL TRANSPLANT
     Route: 048
     Dates: start: 201804
  6. LOSARTAN. [Concomitant]
     Active Substance: LOSARTAN
     Indication: BLOOD PRESSURE MEASUREMENT
     Route: 048
     Dates: start: 2013
  7. ATORVASTATIN [Concomitant]
     Active Substance: ATORVASTATIN
     Indication: BLOOD TRIGLYCERIDES
     Dosage: 1 DF, ONCE DAILY (IN THE NIGHT)
     Route: 048
  8. AZATHIOPRINE. [Concomitant]
     Active Substance: AZATHIOPRINE
     Indication: RENAL IMPAIRMENT
     Dosage: 1 DF, ONCE DAILY (IN THE NIGHT)
     Route: 048
  9. TACROLIMUS. [Suspect]
     Active Substance: TACROLIMUS
     Dosage: 1 MG, ONCE DAILY (1 CAPUSLE OF 1 MG)
     Route: 048
     Dates: start: 20190611
  10. VITAMIN D [COLECALCIFEROL] [Concomitant]
     Active Substance: CHOLECALCIFEROL
     Indication: BONE DEVELOPMENT ABNORMAL
     Dosage: 1 CAPSUEL OF 2000UNITS ONCE DAILY
     Route: 048
     Dates: end: 20200527
  11. TACROLIMUS. [Suspect]
     Active Substance: TACROLIMUS
     Indication: RENAL TRANSPLANT
     Dosage: 2 MG(2 CAPSULES OF 1 MG), ONCE DAILY
     Route: 048
     Dates: start: 20171203, end: 20190610

REACTIONS (7)
  - Bone decalcification [Recovering/Resolving]
  - Gastroenteritis viral [Recovered/Resolved]
  - Fibula fracture [Recovered/Resolved]
  - Dehydration [Recovered/Resolved]
  - Tibia fracture [Recovered/Resolved]
  - Blood creatinine increased [Recovering/Resolving]
  - Dizziness [Not Recovered/Not Resolved]

NARRATIVE: CASE EVENT DATE: 20181123
